FAERS Safety Report 16438777 (Version 2)
Quarter: 2019Q2

REPORT INFORMATION
  Report Type: Spontaneous
  Country: HU (occurrence: HU)
  Receive Date: 20190617
  Receipt Date: 20190620
  Transmission Date: 20190711
  Serious: Yes (Other)
  Sender: FDA-Public Use
  Company Number: HU-ACCORD-132967

PATIENT
  Age: 40 Year
  Sex: Female

DRUGS (17)
  1. COLOXET [Suspect]
     Active Substance: CAPECITABINE
     Indication: RECTOSIGMOID CANCER
     Dosage: BID (IN THE MORNING AND IN THE EVENING)
     Route: 048
     Dates: start: 20190213, end: 2019
  2. LETROX [Concomitant]
     Active Substance: LEVOTHYROXINE SODIUM
     Indication: THYROID DISORDER
     Dosage: 75 MILLIGRAM, QD
     Route: 048
  3. COLECALCIFEROL [Concomitant]
     Active Substance: CHOLECALCIFEROL
     Dosage: 3000 INTERNATIONAL UNIT, QD
     Route: 048
  4. EMETRON [Concomitant]
     Dosage: 8 MILLIGRAM, BEFORE CHEMOTHERAPY
     Route: 042
  5. NEO FERRO FOLGAMMA [Concomitant]
     Indication: PROPHYLAXIS
     Dosage: UNK UNK, QD,DF EQUAL TO 114 MG FERROUS SULPHATE, DRIED + 0.8 MG FOLIC ACID
     Route: 048
  6. FOLINIC ACID [Concomitant]
     Active Substance: LEUCOVORIN
     Indication: RECTOSIGMOID CANCER
     Dosage: UNK
  7. SOLU-MEDROL [Concomitant]
     Active Substance: METHYLPREDNISOLONE SODIUM SUCCINATE
     Dosage: 125 MILLIGRAM, BEFORE CHEMOTHERAPY
     Route: 042
  8. VECTIBIX [Suspect]
     Active Substance: PANITUMUMAB
     Indication: RECTOSIGMOID CANCER
     Dosage: Q2WK ALSO RECEIVED FROM 13-FEB-2019
     Route: 042
     Dates: start: 20180829, end: 20181203
  9. CLEXANE [Concomitant]
     Active Substance: ENOXAPARIN SODIUM
     Dosage: 4000 INTERNATIONAL UNIT, QD
     Route: 058
  10. FLUOROURACIL. [Concomitant]
     Active Substance: FLUOROURACIL
     Indication: RECTOSIGMOID CANCER
     Dosage: UNK
     Dates: start: 201608
  11. VECTIBIX [Concomitant]
     Active Substance: PANITUMUMAB
     Indication: RECTOSIGMOID CANCER
     Route: 042
  12. OXALIPLATIN ACCORD [Suspect]
     Active Substance: OXALIPLATIN
     Indication: RECTOSIGMOID CANCER
     Route: 042
     Dates: start: 20180829
  13. ALLEGRA [Concomitant]
     Active Substance: FEXOFENADINE HYDROCHLORIDE
     Dosage: UNK
     Dates: start: 201809
  14. EGIRAMLON [Concomitant]
     Indication: RENAL HYPERTENSION
     Dosage: 10 MILLIGRAM, QD
     Route: 048
  15. XELODA [Concomitant]
     Active Substance: CAPECITABINE
     Indication: RECTOSIGMOID CANCER
     Dosage: UNK
     Dates: start: 20180829
  16. SUPRASTIN [Suspect]
     Active Substance: CHLOROPYRAMINE HYDROCHLORIDE
     Indication: PRODUCT USED FOR UNKNOWN INDICATION
     Dosage: 20 MG PER CHEMOTHERAPY TREATMENT
     Route: 042
     Dates: start: 201809, end: 201809
  17. CALCIMUSC [Concomitant]
     Active Substance: CALCIUM GLUCONATE
     Dosage: UNK, 1 VIAL BEFORE CHEMOTHERAPY
     Route: 042

REACTIONS (10)
  - Malaise [Recovered/Resolved]
  - Diarrhoea [Not Recovered/Not Resolved]
  - Nausea [Recovered/Resolved]
  - Chills [Recovered/Resolved]
  - Hypersensitivity [Recovered/Resolved]
  - Pyrexia [Recovered/Resolved]
  - Tremor [Recovered/Resolved]
  - Nystagmus [Recovered/Resolved]
  - Depressed level of consciousness [Recovered/Resolved]
  - Vomiting [Recovered/Resolved]

NARRATIVE: CASE EVENT DATE: 201809
